FAERS Safety Report 25634314 (Version 1)
Quarter: 2025Q3

REPORT INFORMATION
  Report Type: Report from Study
  Country: US (occurrence: US)
  Receive Date: 20250801
  Receipt Date: 20250801
  Transmission Date: 20251021
  Serious: Yes (Hospitalization)
  Sender: MALLINCKRODT
  Company Number: US-MALLINCKRODT-MNK202502037

PATIENT
  Sex: Male

DRUGS (3)
  1. CORTICOTROPIN [Suspect]
     Active Substance: CORTICOTROPIN
     Indication: Product used for unknown indication
  2. CORTICOTROPIN [Suspect]
     Active Substance: CORTICOTROPIN
  3. VIGABATRIN [Concomitant]
     Active Substance: VIGABATRIN

REACTIONS (4)
  - Hospitalisation [Unknown]
  - Fatigue [Unknown]
  - Irritability [Unknown]
  - Therapy non-responder [Not Recovered/Not Resolved]
